FAERS Safety Report 7261699-8 (Version None)
Quarter: 2011Q1

REPORT INFORMATION
  Report Type: 
  Country: None (occurrence: None)
  Receive Date: 20110130
  Receipt Date: 20101024
  Transmission Date: 20110831
  Serious: No
  Sender: FDA-Public Use
  Company Number: US-ABBOTT-10P-163-0680918-00

PATIENT
  Age: 40 Year
  Sex: Male

DRUGS (3)
  1. HUMIRA [Suspect]
     Indication: CROHN'S DISEASE
     Dates: start: 20090601
  2. ADVAIR [Concomitant]
     Indication: ASTHMA
  3. FLONASE [Concomitant]
     Indication: RHINITIS

REACTIONS (5)
  - DIZZINESS [None]
  - HEADACHE [None]
  - CONTUSION [None]
  - ASTHENIA [None]
  - PARAESTHESIA [None]
